FAERS Safety Report 5147149-6 (Version None)
Quarter: 2006Q4

REPORT INFORMATION
  Report Type: 
  Country: None (occurrence: None)
  Receive Date: 20061108
  Receipt Date: 20061108
  Transmission Date: 20070319
  Serious: Yes (Hospitalization)
  Sender: FDA-Public Use
  Company Number: None

PATIENT
  Sex: Male
  Weight: 105 kg

DRUGS (3)
  1. FLUDARABINE [Suspect]
     Indication: STEM CELL TRANSPLANT
     Dosage: 70MG    ONCE A DAY    IV DRIP
     Route: 041
     Dates: start: 20060628, end: 20060702
  2. CAMPATH [Suspect]
     Dosage: 20MG    ONCE A DAY    IV DRIP
     Route: 041
     Dates: start: 20060628, end: 20060702
  3. MELPHALAN [Suspect]
     Dosage: 400 MG   ONCE A DAY    IV DRIP
     Route: 041
     Dates: start: 20060703, end: 20060703

REACTIONS (3)
  - CULTURE URINE POSITIVE [None]
  - DYSURIA [None]
  - PYREXIA [None]
